FAERS Safety Report 23736524 (Version 1)
Quarter: 2024Q2

REPORT INFORMATION
  Report Type: Other
  Country: CN (occurrence: CN)
  Receive Date: 20240412
  Receipt Date: 20240412
  Transmission Date: 20240716
  Serious: Yes (Hospitalization)
  Sender: FDA-Public Use
  Company Number: CN-GE HEALTHCARE-2024CSU003576

PATIENT
  Age: 67 Year
  Sex: Female
  Weight: 75 kg

DRUGS (2)
  1. VISIPAQUE [Suspect]
     Active Substance: IODIXANOL
     Indication: Angiogram cerebral
     Dosage: 32 GM, TOTAL
     Route: 013
     Dates: start: 20240317, end: 20240317
  2. VISIPAQUE [Suspect]
     Active Substance: IODIXANOL
     Indication: Carotid artery stent insertion

REACTIONS (3)
  - Aphasia [Recovered/Resolved]
  - Injected limb mobility decreased [Recovered/Resolved]
  - Dysarthria [Recovered/Resolved]

NARRATIVE: CASE EVENT DATE: 20240317
